FAERS Safety Report 16838781 (Version 1)
Quarter: 2019Q3

REPORT INFORMATION
  Report Type: Spontaneous
  Country: US (occurrence: US)
  Receive Date: 20190923
  Receipt Date: 20190923
  Transmission Date: 20191005
  Serious: Yes (Other)
  Sender: FDA-Public Use
  Company Number: US-PFIZER INC-2019394565

PATIENT
  Age: 85 Year
  Sex: Male

DRUGS (3)
  1. AMLODIPINE BESILATE [Suspect]
     Active Substance: AMLODIPINE BESYLATE
     Dosage: UNK
  2. TIMOLOL. [Suspect]
     Active Substance: TIMOLOL
     Dosage: UNK (REPEATED INSTILLATION OF TOPICAL TIMOLOL INTO HIS RIGHT EYE)
     Route: 061
  3. TAMSULOSIN [Concomitant]
     Active Substance: TAMSULOSIN
     Dosage: UNK

REACTIONS (6)
  - Toxicity to various agents [Unknown]
  - Hypoglycaemia [Recovering/Resolving]
  - Hyperkalaemia [Recovering/Resolving]
  - Hypotension [Unknown]
  - Sinus bradycardia [Recovered/Resolved]
  - Atrioventricular block first degree [Recovered/Resolved]
